FAERS Safety Report 5238135-6 (Version None)
Quarter: 2007Q1

REPORT INFORMATION
  Report Type: 
  Country: None (occurrence: None)
  Receive Date: 20070215
  Receipt Date: 20070203
  Transmission Date: 20070707
  Serious: Yes (Hospitalization, Other)
  Sender: FDA-Public Use
  Company Number: PHEH2007US01688

PATIENT
  Sex: Male

DRUGS (2)
  1. DIOVAN HCT [Suspect]
     Indication: HYPERTENSION
     Dosage: UNK, UNK
     Dates: start: 20060101
  2. DIOVAN HCT [Suspect]
     Dosage: UNK, UNK
     Dates: start: 20060101

REACTIONS (5)
  - ABDOMINAL PAIN UPPER [None]
  - DEHYDRATION [None]
  - RENAL CELL CARCINOMA STAGE UNSPECIFIED [None]
  - RENAL SURGERY [None]
  - WEIGHT DECREASED [None]
